FAERS Safety Report 13269954 (Version 1)
Quarter: 2017Q1

REPORT INFORMATION
  Report Type: Spontaneous
  Country: US (occurrence: US)
  Receive Date: 20170224
  Receipt Date: 20170224
  Transmission Date: 20170428
  Serious: Yes (Other)
  Sender: FDA-Public Use
  Company Number: US-IMPAX LABORATORIES, INC-2016-IPXL-01969

PATIENT
  Age: 68 Year
  Sex: Female

DRUGS (2)
  1. MIRTAZAPINE ODT [Suspect]
     Active Substance: MIRTAZAPINE
     Indication: DEPRESSION
     Route: 048
  2. MIRTAZAPINE ODT [Suspect]
     Active Substance: MIRTAZAPINE
     Route: 048

REACTIONS (8)
  - Wrong technique in product usage process [Unknown]
  - Agitation [Unknown]
  - Confusional state [Unknown]
  - Panic attack [Unknown]
  - Anxiety [Unknown]
  - Hyperhidrosis [Unknown]
  - Abnormal dreams [Unknown]
  - White blood cell count decreased [Unknown]

NARRATIVE: CASE EVENT DATE: 201402
